FAERS Safety Report 6275105-3 (Version None)
Quarter: 2009Q3

REPORT INFORMATION
  Report Type: 
  Country: None (occurrence: None)
  Receive Date: 20090721
  Receipt Date: 20090709
  Transmission Date: 20100115
  Serious: Yes (Other)
  Sender: FDA-Public Use
  Company Number: PHHY2009GB28719

PATIENT

DRUGS (1)
  1. AREDIA [Suspect]
     Indication: OSTEITIS
     Dosage: UNK
     Dates: start: 20090706

REACTIONS (3)
  - LYMPHADENOPATHY [None]
  - MUMPS [None]
  - SWELLING [None]
